FAERS Safety Report 9266145 (Version 4)
Quarter: 2016Q3

REPORT INFORMATION
  Report Type: Report from Study
  Country: IT (occurrence: IT)
  Receive Date: 20130502
  Receipt Date: 20160802
  Transmission Date: 20161109
  Serious: Yes (Death, Other)
  Sender: FDA-Public Use
  Company Number: IT-ROCHE-1216476

PATIENT

DRUGS (3)
  1. ARSENIC TRIOXIDE [Suspect]
     Active Substance: ARSENIC TRIOXIDE
     Indication: ACUTE PROMYELOCYTIC LEUKAEMIA
     Dosage: 5 DAYS PER WEEK, 4 WEEKS ON 4 WEEKS OFF, FOR A TOTAL OF 4 COURSES
     Route: 042
  2. IDARUBICIN [Suspect]
     Active Substance: IDARUBICIN
     Indication: ACUTE PROMYELOCYTIC LEUKAEMIA
     Route: 042
  3. TRETINOIN. [Suspect]
     Active Substance: TRETINOIN
     Indication: ACUTE PROMYELOCYTIC LEUKAEMIA
     Dosage: 2 WEEKS ON AND 2 WEEKS OFF FOR A TOTAL OF 7 COURSES
     Route: 048

REACTIONS (8)
  - Pneumonia [Fatal]
  - Thrombocytopenia [Unknown]
  - Liver disorder [Unknown]
  - Pulmonary embolism [Fatal]
  - Toxicity to various agents [Fatal]
  - Acute promyelocytic leukaemia differentiation syndrome [Unknown]
  - H1N1 influenza [Fatal]
  - Neutropenia [Unknown]
